FAERS Safety Report 24730468 (Version 1)
Quarter: 2024Q4

REPORT INFORMATION
  Report Type: Spontaneous
  Country: LT (occurrence: LT)
  Receive Date: 20241213
  Receipt Date: 20241213
  Transmission Date: 20250115
  Serious: Yes (Hospitalization)
  Sender: ABBVIE
  Company Number: LT-ABBVIE-6018237

PATIENT
  Age: 29 Year
  Sex: Male
  Weight: 104 kg

DRUGS (2)
  1. SKYRIZI [Suspect]
     Active Substance: RISANKIZUMAB-RZAA
     Indication: Psoriasis
     Route: 058
     Dates: start: 20240321, end: 20240812
  2. SKYRIZI [Suspect]
     Active Substance: RISANKIZUMAB-RZAA
     Dosage: LAST ADMIN DATE: DEC 2024
     Route: 058
     Dates: start: 20241205

REACTIONS (6)
  - Keratitis [Recovered/Resolved]
  - Ulcerative keratitis [Not Recovered/Not Resolved]
  - Keratitis [Recovered/Resolved]
  - Iridocyclitis [Unknown]
  - Eye swelling [Unknown]
  - Eye movement disorder [Unknown]

NARRATIVE: CASE EVENT DATE: 20240329
